FAERS Safety Report 19504329 (Version 1)
Quarter: 2021Q3

REPORT INFORMATION
  Report Type: Spontaneous
  Country: US (occurrence: US)
  Receive Date: 20210707
  Receipt Date: 20210707
  Transmission Date: 20211014
  Serious: Yes (Other)
  Sender: FDA-Public Use
  Company Number: US-PFIZER INC-2021785793

PATIENT
  Age: 62 Year
  Sex: Female
  Weight: 88.44 kg

DRUGS (7)
  1. ROSUVASTATIN CALCIUM. [Concomitant]
     Active Substance: ROSUVASTATIN CALCIUM
  2. MAGNESIUM [Concomitant]
     Active Substance: MAGNESIUM
  3. PROBIOTIC 10 [Concomitant]
     Active Substance: DIETARY SUPPLEMENT\PROBIOTICS
  4. VITAMINA D3 [Concomitant]
     Active Substance: CHOLECALCIFEROL
  5. INLYTA [Suspect]
     Active Substance: AXITINIB
     Indication: RENAL CELL CARCINOMA
     Dosage: 5 MG, 2X/DAY
     Dates: start: 20210422
  6. ASPIRIN EC [Concomitant]
     Active Substance: ASPIRIN
  7. KEYTRUDA [Suspect]
     Active Substance: PEMBROLIZUMAB

REACTIONS (4)
  - Muscle spasms [Unknown]
  - Blood pressure increased [Unknown]
  - Chest discomfort [Unknown]
  - Infusion related reaction [Unknown]
